FAERS Safety Report 15369772 (Version 1)
Quarter: 2018Q3

REPORT INFORMATION
  Report Type: Spontaneous
  Country: US (occurrence: US)
  Receive Date: 20180904
  Receipt Date: 20180904
  Transmission Date: 20181010
  Serious: Yes (Other)
  Sender: FDA-Public Use
  Company Number: None

PATIENT
  Age: 13 Year
  Sex: Male
  Weight: 49.44 kg

DRUGS (2)
  1. ARIPIPRAZOLE. [Suspect]
     Active Substance: ARIPIPRAZOLE
     Indication: AUTISM SPECTRUM DISORDER
     Dosage: 1 TABLET, AT BED TIME, ORAL
     Route: 048
     Dates: start: 20180501, end: 20180829
  2. ARIPIPRAZOLE. [Suspect]
     Active Substance: ARIPIPRAZOLE
     Indication: AFFECTIVE DISORDER
     Dosage: 1 TABLET, AT BED TIME, ORAL
     Route: 048
     Dates: start: 20180501, end: 20180829

REACTIONS (2)
  - Product substitution issue [None]
  - Drooling [None]

NARRATIVE: CASE EVENT DATE: 20180501
